FAERS Safety Report 6312126-6 (Version None)
Quarter: 2009Q3

REPORT INFORMATION
  Report Type: 
  Country: None (occurrence: None)
  Receive Date: 20090817
  Receipt Date: 20090805
  Transmission Date: 20100115
  Serious: No
  Sender: FDA-Public Use
  Company Number: AU-ELI_LILLY_AND_COMPANY-NZ200908000753

PATIENT
  Sex: Male

DRUGS (2)
  1. ZYPREXA [Suspect]
     Indication: SCHIZOPHRENIA
     Dosage: UNK, UNK
  2. ZYPREXA [Suspect]
     Dosage: 20 MG, 2/D
     Dates: start: 20090701

REACTIONS (3)
  - EPISTAXIS [None]
  - OVERDOSE [None]
  - WEIGHT INCREASED [None]
